FAERS Safety Report 6099929-0 (Version None)
Quarter: 2009Q1

REPORT INFORMATION
  Report Type: 
  Country: None (occurrence: None)
  Receive Date: 20090302
  Receipt Date: 20090302
  Transmission Date: 20090719
  Serious: No
  Sender: FDA-Public Use
  Company Number: None

PATIENT
  Age: 52 Year
  Sex: Female

DRUGS (1)
  1. PHENYTOIN SODIUM EXTENDED [Suspect]
     Indication: CONVULSION
     Dosage: 100 MG 4 DAILY ORALLY
     Route: 048
     Dates: start: 20020901, end: 20030407

REACTIONS (1)
  - DRUG INEFFECTIVE [None]
